FAERS Safety Report 18800123 (Version 1)
Quarter: 2021Q1

REPORT INFORMATION
  Report Type: Spontaneous
  Country: ZA (occurrence: ZA)
  Receive Date: 20210128
  Receipt Date: 20210128
  Transmission Date: 20210419
  Serious: Yes (Hospitalization)
  Sender: FDA-Public Use
  Company Number: ZA-NOVOPROD-781773

PATIENT
  Sex: Female

DRUGS (7)
  1. ATERWIN [Concomitant]
  2. SPIRACTIN [SPIRONOLACTONE] [Concomitant]
     Active Substance: SPIRONOLACTONE
  3. ESTROFEM (ESTRADIOL HEMIHYDRATE) [Suspect]
     Active Substance: ESTRADIOL HEMIHYDRATE
     Indication: HORMONE REPLACEMENT THERAPY
     Dosage: 2 MG
     Route: 048
  4. NECTIZOLE [Concomitant]
     Active Substance: ESOMEPRAZOLE MAGNESIUM
  5. STILNOX [Concomitant]
     Active Substance: ZOLPIDEM TARTRATE
  6. BRAZEPAM [Concomitant]
     Active Substance: BROMAZEPAM
  7. VERAHEXAL [Concomitant]
     Active Substance: VERAPAMIL HYDROCHLORIDE

REACTIONS (1)
  - COVID-19 pneumonia [Unknown]
